FAERS Safety Report 7685763-4 (Version None)
Quarter: 2011Q3

REPORT INFORMATION
  Report Type: 
  Country: None (occurrence: None)
  Receive Date: 20110815
  Receipt Date: 20110815
  Transmission Date: 20111222
  Serious: Yes (Hospitalization)
  Sender: FDA-Public Use
  Company Number: None

PATIENT
  Age: 50 Year
  Sex: Male
  Weight: 66.4 kg

DRUGS (32)
  1. ASPIRIN [Concomitant]
     Route: 048
  2. CALCIUM ACETATE [Concomitant]
     Route: 048
  3. CLOPIDOGREL [Concomitant]
     Route: 048
  4. FAMOTIDINE [Concomitant]
  5. GABAPENTIN [Concomitant]
  6. NYSTATIN [Concomitant]
  7. SIMAVASTATIN [Concomitant]
  8. ALBUTEROL [Concomitant]
     Route: 010
  9. BIOTIN FORTE [Concomitant]
     Route: 048
  10. HYDRALAZINE HCL [Concomitant]
  11. TIGECYCLINE [Concomitant]
  12. INSULIN ASPART [Concomitant]
  13. OMEPRAZOLE [Concomitant]
  14. ASCORBIC ACID [Concomitant]
  15. CARBAMAZEPINE [Concomitant]
  16. ISOSORBIDE MONONITRATE [Concomitant]
  17. PARICALCITOL [Concomitant]
  18. METOPROLOL TARTRATE [Concomitant]
  19. ZOFRAN [Concomitant]
  20. LISINOPRIL [Suspect]
     Indication: HYPERTENSION
     Dosage: 2 TABLETS X 20 MG -40 MG/DOSE-
     Route: 048
     Dates: start: 20110421, end: 20110503
  21. LOMOTIL [Concomitant]
  22. VICODIN [Concomitant]
  23. LISINOPRIL [Concomitant]
  24. METOPROLOL TARTRATE [Concomitant]
  25. PROCRIT [Concomitant]
  26. LINEZOLID [Concomitant]
  27. TOBRAMYCIN [Concomitant]
  28. ZINC [Concomitant]
  29. AMITRIPTYLINE HCL [Concomitant]
     Route: 048
  30. AMLODIPINE [Concomitant]
     Route: 048
  31. INSULIN DETEMIR [Concomitant]
  32. LIDOCAINE -CREAM AND INJECTION- [Concomitant]

REACTIONS (4)
  - ANGIOEDEMA [None]
  - VASCULAR STENOSIS [None]
  - HAEMOGLOBIN DECREASED [None]
  - DRUG HYPERSENSITIVITY [None]
